FAERS Safety Report 23037018 (Version 1)
Quarter: 2023Q4

REPORT INFORMATION
  Report Type: Spontaneous
  Country: CA (occurrence: CA)
  Receive Date: 20231006
  Receipt Date: 20231006
  Transmission Date: 20240110
  Serious: Yes (Death, Other)
  Sender: FDA-Public Use
  Company Number: CA-BAXTER-2023BAX032332

PATIENT
  Sex: Female

DRUGS (13)
  1. DOXORUBICIN [Suspect]
     Active Substance: DOXORUBICIN
     Dosage: UNK, DOSAGE FORM: NOT SPECIFIED
     Route: 065
  2. CYCLOPHOSPHAMIDE [Suspect]
     Active Substance: CYCLOPHOSPHAMIDE
     Dosage: UNK, DOSAGE FORM: POWDER FOR SOLUTION INTRAVENOUS, FREQUENCY: CYCLICAL
     Route: 065
  3. IFOSFAMIDE [Suspect]
     Active Substance: IFOSFAMIDE
     Dosage: UNK, DOSAGE FORM: POWDER FOR SOLUTION INTRAVENOUS, INJECTION, USP
     Route: 065
  4. DAUNORUBICIN HYDROCHLORIDE [Suspect]
     Active Substance: DAUNORUBICIN HYDROCHLORIDE
     Dosage: DOSAGE FORM: POWDER FOR SOLUTION INTRAVENOUS
     Route: 065
  5. ETOPOSIDE [Suspect]
     Active Substance: ETOPOSIDE
     Dosage: DOSAGE FORM: NOT SPECIFIED, FREQUENCY: CYCLICAL
     Route: 065
  6. FLUDARABINE PHOSPHATE [Suspect]
     Active Substance: FLUDARABINE PHOSPHATE
     Dosage: DOSAGE FORM: SOLUTION INTRAVENOUS
     Route: 065
  7. IDARUBICIN [Suspect]
     Active Substance: IDARUBICIN
     Dosage: DOSAGE FORM: NOT SPECIFIED
     Route: 065
  8. LEUCOVORIN [Suspect]
     Active Substance: LEUCOVORIN\LEUCOVORIN CALCIUM
     Dosage: DOSAGE FORM: NOT SPECIFIED, FREQUENCY: CYCLICAL
     Route: 065
  9. METHOTREXATE [Suspect]
     Active Substance: METHOTREXATE
     Dosage: DOSAGE FORM: NOT SPECIFIED, FREQUENCY: CYCLICAL
     Route: 065
  10. RITUXIMAB [Suspect]
     Active Substance: RITUXIMAB
     Dosage: UNK
     Route: 065
  11. VINCRISTINE SULFATE [Suspect]
     Active Substance: VINCRISTINE SULFATE
     Dosage: DOSAGE FORM: NOT SPECIFIED
     Route: 065
  12. CYTARABINE [Suspect]
     Active Substance: CYTARABINE
     Indication: Myelodysplastic syndrome
     Dosage: DOSAGE FORM:NOT SPECIFIED
     Route: 065
  13. CYTARABINE [Suspect]
     Active Substance: CYTARABINE
     Indication: Burkitt^s leukaemia

REACTIONS (9)
  - Acute myeloid leukaemia [Fatal]
  - Drug ineffective [Fatal]
  - Dysplasia [Fatal]
  - Gene mutation [Fatal]
  - Leukoerythroblastosis [Fatal]
  - Myelodysplastic syndrome [Fatal]
  - Myeloid leukaemia [Fatal]
  - Pancytopenia [Fatal]
  - Second primary malignancy [Fatal]
